FAERS Safety Report 8847789 (Version 3)
Quarter: 2012Q4

REPORT INFORMATION
  Report Type: 
  Country: CZ (occurrence: CZ)
  Receive Date: 20121018
  Receipt Date: 20121115
  Transmission Date: 20130627
  Serious: Yes (Hospitalization, Disabling)
  Sender: FDA-Public Use
  Company Number: CZ-SANOFI-AVENTIS-2012SA074481

PATIENT
  Age: 46 Year
  Sex: Male

DRUGS (3)
  1. CLEXANE [Suspect]
     Indication: THROMBOEMBOLISM PROPHYLAXIS
     Route: 058
     Dates: start: 20120817, end: 20120817
  2. ATORVASTATIN [Concomitant]
     Indication: HYPERCHOLESTEROLEMIA
     Dosage: long-term therapy.
     Route: 048
  3. ANOPYRIN [Concomitant]
     Indication: PREVENTION
     Dosage: long-term therapy.
     Route: 048

REACTIONS (4)
  - Vertigo CNS origin [Recovered/Resolved with Sequelae]
  - Diplopia [Recovered/Resolved]
  - Nausea [Recovered/Resolved]
  - Vertigo [Recovered/Resolved]
